FAERS Safety Report 6057112-9 (Version None)
Quarter: 2009Q1

REPORT INFORMATION
  Report Type: 
  Country: None (occurrence: None)
  Receive Date: 20090126
  Receipt Date: 20090126
  Transmission Date: 20090719
  Serious: Yes (Other)
  Sender: FDA-Public Use
  Company Number: None

PATIENT
  Age: 77 Year
  Sex: Male
  Weight: 79.3795 kg

DRUGS (2)
  1. LEVAQUIN [Suspect]
     Indication: BRONCHITIS
     Dosage: 1 TABLET DAILY PO
     Route: 048
     Dates: start: 20090102, end: 20090106
  2. LEVAQUIN [Suspect]
     Indication: BRONCHITIS
     Dosage: 1 TABLET DAILY PO
     Route: 048
     Dates: start: 20090123, end: 20090124

REACTIONS (4)
  - BRONCHITIS [None]
  - CONDITION AGGRAVATED [None]
  - MUSCLE SPASMS [None]
  - TENDON PAIN [None]
